FAERS Safety Report 4479525-9 (Version None)
Quarter: 2004Q4

REPORT INFORMATION
  Report Type: 
  Country: None (occurrence: None)
  Receive Date: 20041015
  Receipt Date: 20041006
  Transmission Date: 20050328
  Serious: Yes (Death)
  Sender: FDA-Public Use
  Company Number: A-CH2004-07617

PATIENT
  Age: 53 Year
  Sex: Female

DRUGS (5)
  1. TRACLEER [Suspect]
     Indication: PULMONARY HYPERTENSION
     Dosage: 62.5 MG, BID, ORAL
     Route: 048
     Dates: start: 20040728, end: 20040928
  2. SILDENAFIL (SILDENAFIL) [Concomitant]
  3. PREVISCAN (FLUINDIONE) [Concomitant]
  4. DIURETICS [Concomitant]
  5. DIGOXIN [Concomitant]

REACTIONS (2)
  - ASPIRATION [None]
  - BRONCHIAL OBSTRUCTION [None]
